FAERS Safety Report 7427257-7 (Version None)
Quarter: 2011Q2

REPORT INFORMATION
  Report Type: 
  Country: None (occurrence: None)
  Receive Date: 20110420
  Receipt Date: 20110418
  Transmission Date: 20111010
  Serious: Yes (Hospitalization, Other)
  Sender: FDA-Public Use
  Company Number: US-PFIZER INC-2010051008

PATIENT
  Sex: Female

DRUGS (2)
  1. DEPAKOTE [Concomitant]
     Indication: CONVULSION
     Dosage: 125 MG IN THE MORNING AND 250 MG IN THE EVENING
     Dates: end: 20041123
  2. DILANTIN [Suspect]
     Indication: PARTIAL SEIZURES
     Dosage: UNK
     Route: 048
     Dates: start: 20041028, end: 20041122

REACTIONS (1)
  - STEVENS-JOHNSON SYNDROME [None]
